FAERS Safety Report 6685765-0 (Version None)
Quarter: 2010Q2

REPORT INFORMATION
  Report Type: 
  Country: None (occurrence: None)
  Receive Date: 20100419
  Receipt Date: 20100408
  Transmission Date: 20101027
  Serious: Yes (Hospitalization)
  Sender: FDA-Public Use
  Company Number: JP-JNJFOC-20100400791

PATIENT
  Sex: Female

DRUGS (8)
  1. CRAVIT [Suspect]
     Indication: INFECTION
     Route: 048
  2. CRAVIT [Suspect]
     Dosage: 250 MG TWICE IN MORNING AND IN EVENING
     Route: 048
  3. ASPIRIN [Concomitant]
     Route: 065
  4. HALCION [Concomitant]
     Route: 065
  5. ALOSENN [Concomitant]
     Route: 048
  6. MICARDIS [Concomitant]
     Route: 048
  7. ASPIRIN [Concomitant]
     Route: 048
  8. ALFAROL [Concomitant]
     Route: 048

REACTIONS (2)
  - CONVULSION [None]
  - OVERDOSE [None]
